FAERS Safety Report 5556856-2 (Version None)
Quarter: 2007Q4

REPORT INFORMATION
  Report Type: 
  Country: None (occurrence: None)
  Receive Date: 20071212
  Receipt Date: 20071212
  Transmission Date: 20080405
  Serious: Yes (Other)
  Sender: FDA-Public Use
  Company Number: None

PATIENT
  Age: 57 Year
  Sex: Male
  Weight: 75 kg

DRUGS (12)
  1. PANITUMUMAB [Suspect]
     Indication: SQUAMOUS CELL CARCINOMA
     Dosage: 2.5 MG/KG IV WKLY 7 WKS
     Route: 042
     Dates: start: 20071106, end: 20071127
  2. CARBOPLATIN [Suspect]
  3. ALKALOL [Concomitant]
  4. ATIVAN [Concomitant]
  5. FENTANYL TRANSDERMAL SYSTEM [Concomitant]
  6. POTASSIUM CHLORIDE [Concomitant]
  7. LIDOCAINE HCL VISCOUS [Concomitant]
  8. OXYCODONE HCL [Concomitant]
  9. PRILOSEC [Concomitant]
  10. REGLAN [Concomitant]
  11. ZOFRAN [Concomitant]
  12. PACLITAXEL [Suspect]

REACTIONS (1)
  - MUCOSAL INFLAMMATION [None]
